FAERS Safety Report 17109216 (Version 1)
Quarter: 2019Q4

REPORT INFORMATION
  Report Type: Spontaneous
  Country: PL (occurrence: PL)
  Receive Date: 20191204
  Receipt Date: 20191204
  Transmission Date: 20200122
  Serious: Yes (Other)
  Sender: FDA-Public Use
  Company Number: PL-AMGEN-POLNI2019200576

PATIENT
  Age: 71 Year
  Sex: Female
  Weight: 117 kg

DRUGS (10)
  1. TRASTUZUMAB. [Suspect]
     Active Substance: TRASTUZUMAB
     Indication: HER-2 POSITIVE BREAST CANCER
     Dosage: 6 MILLIGRAM, 21 DAY
     Route: 042
     Dates: start: 20190128
  2. FUROSEMIDUM [FUROSEMIDE] [Concomitant]
     Active Substance: FUROSEMIDE
     Dosage: 40 MILLIGRAM, QD
     Route: 048
     Dates: start: 20190424
  3. SPIRONOL [Concomitant]
     Active Substance: SPIRONOLACTONE
     Dosage: 25 MILLIGRAM, QD
     Route: 048
     Dates: start: 20190424
  4. PERTUZUMAB. [Suspect]
     Active Substance: PERTUZUMAB
     Indication: HER-2 POSITIVE BREAST CANCER
     Dosage: 420 MILLIGRAM, 21 DAY
     Route: 042
     Dates: start: 20190128
  5. TRITACE [Concomitant]
     Active Substance: RAMIPRIL
     Dosage: 2.5 MILLIGRAM, QD (FREQUENCY: PER DAY)
     Route: 048
     Dates: start: 20190424
  6. NEBILET [Concomitant]
     Active Substance: NEBIVOLOL
     Dosage: 2.5 MILLIGRAM, QOD (FREQUENCY: EVERY OTHER DAY)
     Route: 048
     Dates: start: 20181001
  7. LETROX [Concomitant]
     Active Substance: LEVOTHYROXINE SODIUM
     Dosage: 300 MICROGRAM, QD (FREQUENCY: Q2D)
     Route: 048
     Dates: start: 20190424
  8. LETROX [Concomitant]
     Active Substance: LEVOTHYROXINE SODIUM
     Dosage: 250 MICROGRAM, QD (FREQUENCY: Q2D)
     Route: 048
     Dates: start: 20170101
  9. DOCETAXEL. [Suspect]
     Active Substance: DOCETAXEL
     Indication: HER-2 POSITIVE BREAST CANCER
     Dosage: 1 UNK, 21 DAY
     Route: 042
     Dates: start: 20190128
  10. PARACETAMOL [Concomitant]
     Active Substance: ACETAMINOPHEN
     Dosage: 1000 MILLIGRAM, QD
     Route: 048
     Dates: start: 20190424

REACTIONS (2)
  - Polyneuropathy [Not Recovered/Not Resolved]
  - Off label use [Unknown]

NARRATIVE: CASE EVENT DATE: 20190603
